FAERS Safety Report 6061848-3 (Version None)
Quarter: 2009Q1

REPORT INFORMATION
  Report Type: 
  Country: None (occurrence: None)
  Receive Date: 20090202
  Receipt Date: 20090125
  Transmission Date: 20090719
  Serious: Yes (Hospitalization)
  Sender: FDA-Public Use
  Company Number: PT-AMGEN-UK330595

PATIENT
  Age: 48 Year
  Sex: Female
  Weight: 95 kg

DRUGS (4)
  1. NEULASTA [Suspect]
     Indication: CHEMOTHERAPY
     Route: 058
     Dates: start: 20090116
  2. FLUOROURACIL [Suspect]
     Route: 042
     Dates: start: 20090116
  3. EPIRUBICIN [Suspect]
     Route: 042
     Dates: start: 20090116
  4. CYCLOPHOSPHAMIDE [Suspect]
     Route: 042
     Dates: start: 20090116

REACTIONS (1)
  - FEBRILE NEUTROPENIA [None]
